FAERS Safety Report 5922326-2 (Version None)
Quarter: 2008Q4

REPORT INFORMATION
  Report Type: 
  Country: None (occurrence: None)
  Receive Date: 20081015
  Receipt Date: 20080930
  Transmission Date: 20090506
  Serious: Yes (Hospitalization, Other)
  Sender: FDA-Public Use
  Company Number: 237147J08USA

PATIENT
  Age: 44 Year
  Sex: Female
  Weight: 123 kg

DRUGS (4)
  1. REBIF [Suspect]
     Indication: MULTIPLE SCLEROSIS
     Dosage: 44 MCG, 3 IN 1 WEEKS
     Dates: start: 20070827
  2. HYDROCHLOROTHIAZIDE [Concomitant]
  3. DIOVAN [Concomitant]
  4. LABETALOL HCL [Concomitant]

REACTIONS (6)
  - ABDOMINAL MASS [None]
  - BENIGN NEOPLASM OF ADRENAL GLAND [None]
  - CHOLELITHIASIS [None]
  - FATIGUE [None]
  - GASTRIC DISORDER [None]
  - HIATUS HERNIA [None]
